FAERS Safety Report 9963843 (Version 2)
Quarter: 2014Q1

REPORT INFORMATION
  Report Type: Report from Study
  Country: US (occurrence: US)
  Receive Date: 20140305
  Receipt Date: 20140305
  Transmission Date: 20141002
  Serious: Yes (Death, Life-Threatening, Hospitalization, Other)
  Sender: FDA-Public Use
  Company Number: US-DENDREON CORPORATION-2012SIPUSA00011

PATIENT
  Age: 83 Year
  Sex: Male

DRUGS (20)
  1. SIPULEUCEL-T [Suspect]
     Indication: PROSTATE CANCER METASTATIC
     Dosage: 250 ML, SINGLE
     Route: 042
     Dates: start: 20120420, end: 20120420
  2. METFORMIN [Concomitant]
  3. AMLODIPINE [Concomitant]
  4. ACETAMINOPHEN [Concomitant]
  5. DIPHENHYDRAMINE [Concomitant]
  6. ALBUTEROL [Concomitant]
  7. CALCIUM CITRATE [Concomitant]
  8. CHOLECALCIFEROL [Concomitant]
  9. FISH OIL [Concomitant]
  10. FUROSEMIDE [Concomitant]
  11. LEUPROLIDE ACETATE [Concomitant]
  12. LISINOPRIL [Concomitant]
  13. MULTIVITAMIN [Concomitant]
  14. NITROGLYCERIN ACC [Concomitant]
  15. OXYCODONE [Concomitant]
  16. ROSUVASTATIN [Concomitant]
  17. VITAMIN C [Concomitant]
  18. ZOLEDRONIC ACID MONOHYDRATE [Concomitant]
  19. SUCRALFATE [Concomitant]
  20. OMEPRAZOLE [Concomitant]

REACTIONS (2)
  - Pneumonia [Fatal]
  - Haematuria [Not Recovered/Not Resolved]
